FAERS Safety Report 8810755 (Version 1)
Quarter: 2012Q4

REPORT INFORMATION
  Report Type: Spontaneous
  Country: US (occurrence: None)
  Receive Date: 20120924
  Receipt Date: 20120924
  Transmission Date: 20130627
  Serious: No
  Sender: FDA-Public Use
  Company Number: None

PATIENT
  Age: 64 Year
  Sex: Male
  Weight: 112.49 kg

DRUGS (1)
  1. CLOPIDOGREL [Suspect]
     Indication: ADVERSE REACTION
     Route: 048
     Dates: start: 20120909

REACTIONS (3)
  - Hypoaesthesia [None]
  - Tremor [None]
  - Presyncope [None]
